FAERS Safety Report 12311972 (Version 8)
Quarter: 2018Q4

REPORT INFORMATION
  Report Type: Spontaneous
  Country: FR (occurrence: FR)
  Receive Date: 20160427
  Receipt Date: 20181004
  Transmission Date: 20190204
  Serious: Yes (Hospitalization, Disabling, Congenital Anomaly, Other)
  Sender: FDA-Public Use
  Company Number: FR-ABBVIE-16P-056-1614844-00

PATIENT
  Sex: Male
  Weight: 1.8 kg

DRUGS (4)
  1. DEPAKINE CHRONO [Suspect]
     Active Substance: VALPROATE SODIUM
     Indication: MATERNAL EXPOSURE TIMING UNSPECIFIED
     Route: 064
     Dates: start: 20060911, end: 20070504
  2. TARDYFERON [Concomitant]
     Active Substance: FERROUS SULFATE
     Indication: PRODUCT USED FOR UNKNOWN INDICATION
  3. SPECIAFOLDINE [Concomitant]
     Active Substance: FOLIC ACID
     Indication: PRODUCT USED FOR UNKNOWN INDICATION
  4. DEPAKINE [Suspect]
     Active Substance: VALPROATE SODIUM
     Indication: FEBRILE CONVULSION
     Route: 065
     Dates: start: 200903, end: 201007

REACTIONS (35)
  - Hypermetropia [Unknown]
  - Dyspraxia [Unknown]
  - Foetal heart rate abnormal [Unknown]
  - Musculoskeletal stiffness [Unknown]
  - Speech disorder developmental [Unknown]
  - Dysgraphia [Unknown]
  - Urinary tract infection [Unknown]
  - Inguinal hernia [Unknown]
  - Abnormal behaviour [Unknown]
  - Premature baby [Unknown]
  - Foot deformity [Unknown]
  - Anxiety [Unknown]
  - Encopresis [Unknown]
  - Faecaloma [Unknown]
  - Foetal growth restriction [Unknown]
  - Knee deformity [Unknown]
  - Febrile convulsion [Unknown]
  - Pectus excavatum [Unknown]
  - Foetal exposure during pregnancy [Unknown]
  - Foetal anticonvulsant syndrome [Unknown]
  - Visual impairment [Unknown]
  - Intestinal obstruction [Unknown]
  - Phimosis [Unknown]
  - Febrile convulsion [Unknown]
  - Respiratory disorder [Unknown]
  - Fine motor delay [Unknown]
  - Disturbance in attention [Unknown]
  - Educational problem [Unknown]
  - Constipation [Unknown]
  - Dysmorphism [Unknown]
  - Enuresis [Unknown]
  - Panic attack [Unknown]
  - Ear infection [Unknown]
  - Gastrointestinal disorder [Unknown]
  - Speech disorder [Unknown]

NARRATIVE: CASE EVENT DATE: 20070504
